FAERS Safety Report 18258798 (Version 2)
Quarter: 2020Q4

REPORT INFORMATION
  Report Type: Spontaneous
  Country: RO (occurrence: RO)
  Receive Date: 20200911
  Receipt Date: 20201015
  Transmission Date: 20210113
  Serious: Yes (Other)
  Sender: FDA-Public Use
  Company Number: NVSC2020RO247606

PATIENT
  Sex: Male

DRUGS (2)
  1. MEKINIST [Suspect]
     Active Substance: TRAMETINIB DIMETHYL SULFOXIDE
     Indication: MALIGNANT MELANOMA STAGE III
     Dosage: 2 MG, QD
     Route: 065
     Dates: end: 202008
  2. TAFINLAR COMBO [Suspect]
     Active Substance: DABRAFENIB\TRAMETINIB
     Indication: MALIGNANT MELANOMA STAGE III
     Dosage: 150 MG, BID
     Route: 048
     Dates: start: 202002, end: 202008

REACTIONS (3)
  - Electrocardiogram QT prolonged [Recovering/Resolving]
  - Cardiac disorder [Recovering/Resolving]
  - Ejection fraction [Recovering/Resolving]

NARRATIVE: CASE EVENT DATE: 202007
